FAERS Safety Report 5551461-6 (Version None)
Quarter: 2007Q4

REPORT INFORMATION
  Report Type: 
  Country: None (occurrence: None)
  Receive Date: 20071128
  Receipt Date: 20070813
  Transmission Date: 20080405
  Serious: Yes (Other)
  Sender: FDA-Public Use
  Company Number: 2007059687

PATIENT
  Sex: Female

DRUGS (3)
  1. LIPITOR [Suspect]
  2. AMITIZA [Suspect]
     Indication: IRRITABLE BOWEL SYNDROME
     Dosage: 24 MCG, ORAL
     Route: 048
  3. TRICOR [Suspect]

REACTIONS (2)
  - ADVERSE EVENT [None]
  - CHEST DISCOMFORT [None]
